FAERS Safety Report 4344807-8 (Version None)
Quarter: 2004Q2

REPORT INFORMATION
  Report Type: 
  Country: None (occurrence: None)
  Receive Date: 20040420
  Receipt Date: 20040408
  Transmission Date: 20050107
  Serious: Yes (Hospitalization)
  Sender: FDA-Public Use
  Company Number: US-JNJFOC-20040401722

PATIENT
  Age: 52 Year
  Sex: Female

DRUGS (9)
  1. INFLIXIMAB (INFLIXIMAB, RECOMBINANT) LYOPHILIZED POWDER [Suspect]
     Indication: RHEUMATOID ARTHRITIS
     Dates: start: 20010910
  2. PREMPRO 14/14 [Concomitant]
  3. PAXIL [Concomitant]
  4. FLEXERIL [Concomitant]
  5. ASPIRIN [Concomitant]
  6. MORPHIEN SULFATE (MORPHINE SULFATE) [Concomitant]
  7. KLONAPIN (CLONAZEPAM) [Concomitant]
  8. METHOTREXATE [Concomitant]
  9. FOLIC ACID [Concomitant]

REACTIONS (8)
  - ABDOMINAL PAIN [None]
  - CHOLELITHIASIS [None]
  - FIBROSIS [None]
  - INFLAMMATION [None]
  - MENORRHAGIA [None]
  - NAUSEA [None]
  - POSTMENOPAUSAL HAEMORRHAGE [None]
  - UTERINE LEIOMYOMA [None]
